FAERS Safety Report 7867957-8 (Version None)
Quarter: 2011Q4

REPORT INFORMATION
  Report Type: 
  Country: None (occurrence: None)
  Receive Date: 20111028
  Receipt Date: 20111018
  Transmission Date: 20120403
  Serious: Yes (Hospitalization, Other)
  Sender: FDA-Public Use
  Company Number: CA-GENZYME-FABR-1002208

PATIENT

DRUGS (2)
  1. FABRAZYME [Suspect]
     Indication: FABRY'S DISEASE
     Dosage: UNK
     Route: 042
  2. ANTIBIOTICS [Concomitant]
     Indication: PROPHYLAXIS
     Route: 065

REACTIONS (2)
  - TOOTH DISORDER [None]
  - CLOSTRIDIAL INFECTION [None]
